FAERS Safety Report 18874985 (Version 2)
Quarter: 2021Q1

REPORT INFORMATION
  Report Type: Other
  Country: DE (occurrence: DE)
  Receive Date: 20210210
  Receipt Date: 20210309
  Transmission Date: 20210420
  Serious: Yes (Disabling)
  Sender: FDA-Public Use
  Company Number: DE-GE HEALTHCARE LIFE SCIENCES-2021CSU000607

PATIENT

DRUGS (6)
  1. PROHANCE [Suspect]
     Active Substance: GADOTERIDOL
     Indication: MAGNETIC RESONANCE IMAGING
     Dosage: 14 ML
     Route: 042
     Dates: start: 20060303, end: 20060303
  2. OMNISCAN [Suspect]
     Active Substance: GADODIAMIDE
     Indication: PRODUCT USED FOR UNKNOWN INDICATION
     Dosage: 20 ML, SINGLE
     Route: 042
     Dates: start: 20060208, end: 20060208
  3. MAGNEVIST [Suspect]
     Active Substance: GADOPENTETATE DIMEGLUMINE
     Dosage: 42 ML
     Route: 042
     Dates: start: 20050828, end: 20050828
  4. MAGNEVIST [Suspect]
     Active Substance: GADOPENTETATE DIMEGLUMINE
     Indication: MAGNETIC RESONANCE IMAGING
     Dosage: 16 ML
     Route: 042
     Dates: start: 20060404, end: 20060404
  5. OMNISCAN [Suspect]
     Active Substance: GADODIAMIDE
     Indication: MAGNETIC RESONANCE IMAGING
     Dosage: 15 ML, SINGLE
     Route: 042
     Dates: start: 20060907, end: 20060907
  6. DOTAREM [Suspect]
     Active Substance: GADOTERATE MEGLUMINE
     Indication: MAGNETIC RESONANCE IMAGING
     Dosage: 15 ML
     Route: 042
     Dates: start: 20060704, end: 20060704

REACTIONS (1)
  - Nephrogenic systemic fibrosis [Unknown]

NARRATIVE: CASE EVENT DATE: 2006
